FAERS Safety Report 24427304 (Version 1)
Quarter: 2024Q4

REPORT INFORMATION
  Report Type: Spontaneous
  Country: US (occurrence: US)
  Receive Date: 20241011
  Receipt Date: 20241011
  Transmission Date: 20250114
  Serious: Yes (Other)
  Sender: PFIZER
  Company Number: US-PFIZER INC-202400274021

PATIENT
  Age: 85 Year
  Sex: Female
  Weight: 59.42 kg

DRUGS (8)
  1. GENOTROPIN [Suspect]
     Active Substance: SOMATROPIN
     Indication: Amnesia
     Dosage: 0.5 MG, DAILY
  2. GENOTROPIN [Suspect]
     Active Substance: SOMATROPIN
     Indication: Aphasia
  3. GENOTROPIN [Suspect]
     Active Substance: SOMATROPIN
     Indication: Headache
  4. GENOTROPIN [Suspect]
     Active Substance: SOMATROPIN
     Indication: Ear pain
  5. GENOTROPIN [Suspect]
     Active Substance: SOMATROPIN
     Indication: Oropharyngeal pain
  6. NEXIUM I.V. [Concomitant]
     Active Substance: ESOMEPRAZOLE SODIUM
     Indication: Gastrooesophageal reflux disease
     Dosage: UNK
  7. LOSARTAN [Concomitant]
     Active Substance: LOSARTAN
     Indication: Blood pressure abnormal
     Dosage: 100 MG
  8. URSODIOL [Concomitant]
     Active Substance: URSODIOL
     Indication: Primary biliary cholangitis
     Dosage: 300 MG (BEEN ON FOR 10 YEARS)

REACTIONS (4)
  - Upper limb fracture [Unknown]
  - Hand fracture [Unknown]
  - Fall [Unknown]
  - Off label use [Unknown]

NARRATIVE: CASE EVENT DATE: 20240501
